FAERS Safety Report 11496100 (Version 1)
Quarter: 2015Q3

REPORT INFORMATION
  Report Type: Spontaneous
  Country: US (occurrence: US)
  Receive Date: 20150911
  Receipt Date: 20150911
  Transmission Date: 20151125
  Serious: Yes (Disabling, Congenital Anomaly, Other)
  Sender: FDA-Public Use
  Company Number: US-ABBVIE-15P-163-1458108-00

PATIENT
  Sex: Male

DRUGS (1)
  1. DEPAKOTE [Suspect]
     Active Substance: DIVALPROEX SODIUM
     Indication: MATERNAL EXPOSURE TIMING UNSPECIFIED
     Route: 064

REACTIONS (19)
  - Oppositional defiant disorder [Unknown]
  - Language disorder [Unknown]
  - Injury [Unknown]
  - Economic problem [Unknown]
  - Developmental delay [Not Recovered/Not Resolved]
  - Autism [Unknown]
  - Activities of daily living impaired [Unknown]
  - Cognitive disorder [Not Recovered/Not Resolved]
  - Foetal exposure during pregnancy [Unknown]
  - Illiteracy [Unknown]
  - Pain [Unknown]
  - Anhedonia [Unknown]
  - Nervous system disorder [Not Recovered/Not Resolved]
  - Speech disorder [Unknown]
  - Attention deficit/hyperactivity disorder [Unknown]
  - Emotional distress [Unknown]
  - Autism spectrum disorder [Unknown]
  - Mental impairment [Unknown]
  - Anxiety [Unknown]
